FAERS Safety Report 5428074-X (Version None)
Quarter: 2007Q3

REPORT INFORMATION
  Report Type: 
  Country: None (occurrence: None)
  Receive Date: 20070731
  Receipt Date: 20070425
  Transmission Date: 20080115
  Serious: No
  Sender: FDA-Public Use
  Company Number: US200704005898

PATIENT
  Age: 48 Year
  Sex: Female
  Weight: 140.6 kg

DRUGS (2)
  1. BYETTA [Suspect]
     Indication: TYPE 2 DIABETES MELLITUS
     Dosage: 5 UG 2/D SUBCUTANEOUS
     Route: 058
     Dates: start: 20070326
  2. EXENATIDE (5MCG PEN, DISPOSABLE DEVICE (EXENATIDE PEN (5 MCG)) PEN, DI [Concomitant]

REACTIONS (3)
  - ANAESTHETIC COMPLICATION [None]
  - FATIGUE [None]
  - NAUSEA [None]
